FAERS Safety Report 10045643 (Version 2)
Quarter: 2014Q3

REPORT INFORMATION
  Report Type: Spontaneous
  Country: IT (occurrence: IT)
  Receive Date: 20140328
  Receipt Date: 20140926
  Transmission Date: 20150326
  Serious: Yes (Hospitalization)
  Sender: FDA-Public Use
  Company Number: IT-BRISTOL-MYERS SQUIBB COMPANY-20551396

PATIENT
  Age: 82 Year
  Sex: Male

DRUGS (1)
  1. COUMADIN [Suspect]
     Active Substance: WARFARIN SODIUM
     Indication: DEEP VEIN THROMBOSIS
     Dosage: INTERRUPTED ON 09MAR2014?3/4 TABS ON WED,SAT AND 1/2 TABS ON MON,TUE,THU,FRI,SUN.
     Route: 048
     Dates: start: 20130415

REACTIONS (4)
  - Paraesthesia [Recovering/Resolving]
  - Extradural haematoma [Recovering/Resolving]
  - Hemiparesis [Recovering/Resolving]
  - Urinary retention [Recovering/Resolving]

NARRATIVE: CASE EVENT DATE: 20140309
